FAERS Safety Report 10008865 (Version 1)
Quarter: 2014Q1

REPORT INFORMATION
  Report Type: Spontaneous
  Country: US (occurrence: US)
  Receive Date: 20140313
  Receipt Date: 20140313
  Transmission Date: 20141002
  Serious: No
  Sender: FDA-Public Use
  Company Number: US-INCYTE CORPORATION-2012IN000947

PATIENT
  Age: 77 Year
  Sex: Female

DRUGS (8)
  1. JAKAFI [Suspect]
     Indication: MYELOFIBROSIS
     Dosage: 20 MG, BID
     Route: 048
     Dates: start: 2012
  2. SYNTHROID [Concomitant]
     Dosage: 88 MCG, QD
     Route: 048
  3. VITAMIN D [Concomitant]
     Dosage: 50000 IU, ONCE A MONTH
  4. URSO FORTE [Concomitant]
     Dosage: 500 MG, QD
     Route: 048
  5. HYDROCHLOROTHIAZIDE/HCTZ [Concomitant]
     Dosage: 25 MG, UNK
     Route: 048
  6. ZOLOFT [Concomitant]
     Dosage: 25 MG, QD
     Route: 048
  7. FOLIC ACID [Concomitant]
     Dosage: 1 MG, QD
     Route: 048
  8. ASPIRIN [Concomitant]
     Dosage: 81 MG, QD
     Route: 048

REACTIONS (1)
  - Tremor [Unknown]
